FAERS Safety Report 25883527 (Version 2)
Quarter: 2025Q4

REPORT INFORMATION
  Report Type: Spontaneous
  Country: US (occurrence: US)
  Receive Date: 20251006
  Receipt Date: 20251011
  Transmission Date: 20260117
  Serious: No
  Sender: ABBVIE
  Company Number: US-ABBVIE-6490007

PATIENT
  Age: 35 Year
  Sex: Male

DRUGS (1)
  1. QULIPTA [Suspect]
     Active Substance: ATOGEPANT
     Indication: Migraine prophylaxis
     Dosage: 60 MILLIGRAM?LAST ADMIN DATE 2025
     Route: 048
     Dates: start: 202509

REACTIONS (1)
  - Disturbance in attention [Unknown]

NARRATIVE: CASE EVENT DATE: 20250901
